FAERS Safety Report 14390763 (Version 3)
Quarter: 2023Q4

REPORT INFORMATION
  Report Type: Spontaneous
  Country: CZ (occurrence: CZ)
  Receive Date: 20180116
  Receipt Date: 20231113
  Transmission Date: 20240109
  Serious: Yes (Life-Threatening, Hospitalization, Other)
  Sender: FDA-Public Use
  Company Number: CZ-AUROBINDO-AUR-APL-2018-002056

PATIENT
  Age: 51 Year
  Sex: Female

DRUGS (29)
  1. PAROXETINE [Interacting]
     Active Substance: PAROXETINE
     Indication: Psychotherapy
     Dosage: 60 MG, QD
     Route: 065
  2. PAROXETINE [Interacting]
     Active Substance: PAROXETINE
     Dosage: 60 MG, QD
     Route: 065
  3. TRAMADOL [Interacting]
     Active Substance: TRAMADOL\TRAMADOL HYDROCHLORIDE
     Indication: Analgesic therapy
     Dosage: UNK
     Route: 065
  4. TRAMADOL [Interacting]
     Active Substance: TRAMADOL\TRAMADOL HYDROCHLORIDE
     Dosage: 50 MG, UNK
     Route: 065
  5. ACETAMINOPHEN [Suspect]
     Active Substance: ACETAMINOPHEN
     Indication: Analgesic therapy
     Dosage: 4 G, QD
     Route: 065
  6. ACETAMINOPHEN\TRAMADOL [Interacting]
     Active Substance: ACETAMINOPHEN\TRAMADOL
     Indication: Product used for unknown indication
     Dosage: UNK
     Route: 065
  7. MIDAZOLAM [Suspect]
     Active Substance: MIDAZOLAM
     Indication: Myoclonus
     Dosage: 15 MG, 1HR
     Route: 065
  8. MIDAZOLAM [Suspect]
     Active Substance: MIDAZOLAM
     Indication: Sedation
     Dosage: 10-15 MG, Q.H.
     Route: 065
  9. MIDAZOLAM [Suspect]
     Active Substance: MIDAZOLAM
     Dosage: 15 MG, 1HR
     Route: 065
  10. MIDAZOLAM [Suspect]
     Active Substance: MIDAZOLAM
     Dosage: UNK ()
     Route: 065
  11. TRAZODONE [Suspect]
     Active Substance: TRAZODONE HYDROCHLORIDE
     Indication: Psychotherapy
     Dosage: 300 MG, QD
     Route: 065
  12. SUFENTANIL [Suspect]
     Active Substance: SUFENTANIL
     Indication: Sedation
     Dosage: ()
     Route: 065
  13. CODEINE [Suspect]
     Active Substance: CODEINE
     Indication: Pain
     Dosage: UNK
     Route: 065
  14. MELOXICAM [Interacting]
     Active Substance: MELOXICAM
     Indication: Analgesic therapy
     Dosage: UNK
     Route: 065
  15. LEVOFLOXACIN [Interacting]
     Active Substance: LEVOFLOXACIN
     Indication: Antibiotic therapy
     Dosage: UNK
     Route: 065
  16. METOCLOPRAMIDE [Interacting]
     Active Substance: METOCLOPRAMIDE
     Indication: Product used for unknown indication
     Dosage: UNK
     Route: 065
  17. CHLORPROTHIXENE [Interacting]
     Active Substance: CHLORPROTHIXENE
     Indication: Psychotherapy
     Dosage: 50 MG, PER DAY
     Route: 065
  18. HYDROXYZINE [Interacting]
     Active Substance: HYDROXYZINE HYDROCHLORIDE
     Indication: Anxiolytic therapy
     Dosage: UNK
     Route: 065
  19. BROMAZEPAM [Concomitant]
     Active Substance: BROMAZEPAM
     Indication: Psychotherapy
     Dosage: 2 MG, QD
     Route: 065
  20. INDOMETHACIN [Concomitant]
     Active Substance: INDOMETHACIN
     Indication: Analgesic therapy
     Dosage: UNK
     Route: 065
  21. IVABRADINE [Concomitant]
     Active Substance: IVABRADINE
     Indication: Sinus tachycardia
     Dosage: 10 MG, QD
     Route: 065
  22. PIPERACILLIN AND TAZOBACTAM [Concomitant]
     Active Substance: PIPERACILLIN SODIUM\TAZOBACTAM SODIUM
     Indication: Antibiotic therapy
     Dosage: UNK
     Route: 065
  23. BUDESONIDE [Concomitant]
     Active Substance: BUDESONIDE
     Indication: Asthma
     Dosage: 160/ 4.5 MG
     Route: 055
  24. VORICONAZOLE [Concomitant]
     Active Substance: VORICONAZOLE
     Indication: Pneumonia
     Dosage: UNK
     Route: 065
  25. VORICONAZOLE [Concomitant]
     Active Substance: VORICONAZOLE
     Indication: Candida infection
  26. VORICONAZOLE [Concomitant]
     Active Substance: VORICONAZOLE
     Indication: Aspergillus infection
  27. CISATRACURIUM [Concomitant]
     Active Substance: CISATRACURIUM
     Indication: Product used for unknown indication
     Dosage: 20 MILLIGRAM
     Route: 065
  28. NOREPINEPHRINE [Concomitant]
     Active Substance: NOREPINEPHRINE
     Indication: Product used for unknown indication
     Dosage: UNK
     Route: 065
  29. ESMOLOL [Concomitant]
     Active Substance: ESMOLOL HYDROCHLORIDE
     Indication: Product used for unknown indication
     Dosage: UNK
     Route: 065

REACTIONS (29)
  - Drug ineffective [Not Recovered/Not Resolved]
  - Serotonin syndrome [Unknown]
  - Depressed level of consciousness [Unknown]
  - Circulatory collapse [Unknown]
  - Oliguria [Unknown]
  - Hypertension [Unknown]
  - Dyspnoea [Unknown]
  - Hyperhidrosis [Unknown]
  - Metabolic acidosis [Recovered/Resolved]
  - Restlessness [Unknown]
  - Pyrexia [Unknown]
  - Drug interaction [Unknown]
  - Agitation [Unknown]
  - Pneumonia fungal [Unknown]
  - Tremor [Unknown]
  - Sinus tachycardia [Unknown]
  - Myoglobin blood increased [Unknown]
  - Tachycardia [Unknown]
  - Myoclonus [Unknown]
  - Arthralgia [Unknown]
  - Muscle spasms [Unknown]
  - Delirium [Unknown]
  - Mydriasis [Unknown]
  - Leukocytosis [Unknown]
  - Rhabdomyolysis [Unknown]
  - Toxicologic test abnormal [Unknown]
  - Treatment noncompliance [Unknown]
  - Incorrect dose administered [Unknown]
  - Apallic syndrome [Unknown]
